FAERS Safety Report 25626836 (Version 1)
Quarter: 2025Q3

REPORT INFORMATION
  Report Type: Spontaneous
  Country: US (occurrence: US)
  Receive Date: 20250731
  Receipt Date: 20250731
  Transmission Date: 20251020
  Serious: Yes (Other)
  Sender: BAYER HEALTHCARE PHARMACEUTICALS INC.
  Company Number: US-BAYER-2025A097311

PATIENT
  Age: 75 Year
  Sex: Female

DRUGS (1)
  1. KERENDIA [Suspect]
     Active Substance: FINERENONE
     Indication: Diabetes mellitus
     Dosage: 10 MG, QD
     Dates: start: 20250620, end: 20250719

REACTIONS (8)
  - Blood glucose decreased [Recovering/Resolving]
  - General physical health deterioration [None]
  - Protein urine present [None]
  - Fatigue [None]
  - Somnolence [None]
  - Expired product administered [None]
  - Feeling abnormal [Recovered/Resolved]
  - Proteinuria [None]

NARRATIVE: CASE EVENT DATE: 20250701
